FAERS Safety Report 8555434 (Version 3)
Quarter: 2012Q4

REPORT INFORMATION
  Report Type: 
  Country: US (occurrence: US)
  Receive Date: 20120510
  Receipt Date: 20121001
  Transmission Date: 20130627
  Serious: Yes (Hospitalization, Other)
  Sender: FDA-Public Use
  Company Number: US-BAYER-2012-043639

PATIENT
  Age: 26 Year
  Sex: Female
  Weight: 79.37 kg

DRUGS (9)
  1. YASMIN [Suspect]
     Indication: CONTRACEPTION
     Dosage: UNK
     Dates: start: 1995, end: 2004
  2. PRENATAL VITAMINS [Concomitant]
  3. TERBUTALINE [Concomitant]
     Route: 048
  4. ADENOCARD [Concomitant]
  5. PROCARDIA XL [Concomitant]
     Dosage: 30 mg, QID
  6. LOPRESSOR [Concomitant]
     Dosage: 50 mg, PRN
  7. MEPERGAN FORTIS [Concomitant]
     Indication: PAIN
     Route: 048
  8. CELESTONE [Concomitant]
  9. ANTIBIOTICS [Concomitant]

REACTIONS (10)
  - Pregnancy on oral contraceptive [None]
  - Premature baby [None]
  - Myocardial infarction [Recovered/Resolved]
  - Tachycardia [Recovered/Resolved]
  - Venous thrombosis [None]
  - Injury [Recovered/Resolved]
  - Pain [Recovered/Resolved]
  - Emotional distress [None]
  - Tachycardia [Recovered/Resolved]
  - Cardiac disorder [Recovered/Resolved]
